FAERS Safety Report 9517191 (Version 1)
Quarter: 2013Q3

REPORT INFORMATION
  Report Type: Spontaneous
  Country: US (occurrence: US)
  Receive Date: 20130911
  Receipt Date: 20130911
  Transmission Date: 20140515
  Serious: No
  Sender: FDA-Public Use
  Company Number: US-ASTRAZENECA-2013SE52865

PATIENT
  Age: 83 Year
  Sex: Female
  Weight: 68 kg

DRUGS (3)
  1. SYMBICORT [Suspect]
     Indication: ASTHMA
     Dosage: 160/4.5, 2 PUFFS BID
     Route: 055
  2. BENICAR [Concomitant]
  3. VENTALIN [Concomitant]

REACTIONS (3)
  - Dyspnoea [Unknown]
  - Balance disorder [Unknown]
  - Dizziness [Unknown]
